FAERS Safety Report 23204836 (Version 1)
Quarter: 2023Q4

REPORT INFORMATION
  Report Type: Report from Study
  Country: FR (occurrence: FR)
  Receive Date: 20231120
  Receipt Date: 20231120
  Transmission Date: 20240110
  Serious: Yes (Hospitalization, Other)
  Sender: FDA-Public Use
  Company Number: FR-DSJP-DSE-2023-146705

PATIENT
  Age: 73 Year
  Sex: Female
  Weight: 62 kg

DRUGS (2)
  1. ENHERTU [Suspect]
     Active Substance: FAM-TRASTUZUMAB DERUXTECAN-NXKI
     Indication: HER2 low breast cancer
     Dosage: 5.4 MG/KG, CYCLIC
     Route: 042
     Dates: start: 20230711
  2. ENHERTU [Suspect]
     Active Substance: FAM-TRASTUZUMAB DERUXTECAN-NXKI
     Indication: Breast cancer metastatic
     Dosage: 4.4 MG/KG, CYCLIC
     Route: 042
     Dates: end: 20231003

REACTIONS (6)
  - Cardiotoxicity [Recovering/Resolving]
  - Acute respiratory distress syndrome [Recovering/Resolving]
  - Hyperhidrosis [Recovering/Resolving]
  - Respiratory acidosis [Recovering/Resolving]
  - Left ventricular dysfunction [Recovering/Resolving]
  - Arteriosclerosis coronary artery [Recovering/Resolving]

NARRATIVE: CASE EVENT DATE: 20231006
